FAERS Safety Report 8414413-4 (Version None)
Quarter: 2012Q2

REPORT INFORMATION
  Report Type: 
  Country: None (occurrence: None)
  Receive Date: 20120605
  Receipt Date: 20120522
  Transmission Date: 20120825
  Serious: Yes (Other)
  Sender: FDA-Public Use
  Company Number: CHPA2012US011444

PATIENT
  Age: 79 Year
  Sex: Male

DRUGS (4)
  1. BENEFIBER W/ WHEAT DEXTRIN [Suspect]
     Indication: BOWEL MOVEMENT IRREGULARITY
     Dosage: 2 TSP, TID
     Route: 048
     Dates: start: 20090101
  2. COLACE [Concomitant]
     Indication: PROPHYLAXIS
     Dosage: UNK, UNK
     Dates: start: 20120505
  3. SENOKOT [Concomitant]
     Indication: PROPHYLAXIS
     Dosage: UNK, UNK
     Dates: start: 20120505
  4. PERCOCET [Concomitant]
     Indication: PROCEDURAL PAIN
     Dosage: UNK, UNK
     Route: 048
     Dates: start: 20120505

REACTIONS (1)
  - INTERVERTEBRAL DISC DEGENERATION [None]
